FAERS Safety Report 17934326 (Version 1)
Quarter: 2020Q2

REPORT INFORMATION
  Report Type: Spontaneous
  Country: US (occurrence: US)
  Receive Date: 20200623
  Receipt Date: 20200623
  Transmission Date: 20200714
  Serious: No
  Sender: FDA-Public Use
  Company Number: None

PATIENT
  Age: 54 Year
  Sex: Male
  Weight: 144 kg

DRUGS (10)
  1. OMEPRAZOLE. [Concomitant]
     Active Substance: OMEPRAZOLE
     Dates: start: 20200612
  2. ACETAMINOPHEN. [Concomitant]
     Active Substance: ACETAMINOPHEN
     Dates: start: 20200612
  3. NOREPINEPHRINE. [Concomitant]
     Active Substance: NOREPINEPHRINE
     Dates: start: 20200614
  4. HEPARIN [Concomitant]
     Active Substance: HEPARIN SODIUM
     Dates: start: 20200613
  5. CHLORHEXIDINE TOPICAL [Concomitant]
     Dates: start: 20200614
  6. REMDESIVIR. [Suspect]
     Active Substance: REMDESIVIR
     Indication: COVID-19
     Dates: start: 20200613, end: 20200614
  7. MIDAZOLAM. [Concomitant]
     Active Substance: MIDAZOLAM
     Dates: start: 20200614, end: 20200621
  8. ROCRONIUM [Concomitant]
     Dates: start: 20200614, end: 20200621
  9. FENTANYL. [Concomitant]
     Active Substance: FENTANYL
     Dates: start: 20200614, end: 20200621
  10. PROPOFOL. [Concomitant]
     Active Substance: PROPOFOL
     Dates: start: 20200614

REACTIONS (3)
  - Acute kidney injury [None]
  - Respiratory failure [None]
  - Dialysis [None]

NARRATIVE: CASE EVENT DATE: 20200615
